FAERS Safety Report 19037761 (Version 1)
Quarter: 2021Q1

REPORT INFORMATION
  Report Type: Spontaneous
  Country: FR (occurrence: FR)
  Receive Date: 20210322
  Receipt Date: 20210322
  Transmission Date: 20210420
  Serious: Yes (Other)
  Sender: FDA-Public Use
  Company Number: FR-PFIZER INC-2021304235

PATIENT
  Age: 49 Year
  Sex: Male
  Weight: 111 kg

DRUGS (2)
  1. MEKTOVI [Suspect]
     Active Substance: BINIMETINIB
     Indication: METASTATIC MALIGNANT MELANOMA
     Dosage: 90 MG DAILY
     Route: 048
     Dates: start: 202011
  2. BRAFTOVI [Suspect]
     Active Substance: ENCORAFENIB
     Indication: METASTATIC MALIGNANT MELANOMA
     Dosage: 450 MG DAILY
     Route: 048
     Dates: start: 202011

REACTIONS (1)
  - Secondary hypertension [Recovered/Resolved]

NARRATIVE: CASE EVENT DATE: 2020
